FAERS Safety Report 6279250-8 (Version None)
Quarter: 2009Q3

REPORT INFORMATION
  Report Type: 
  Country: None (occurrence: None)
  Receive Date: 20090717
  Receipt Date: 20090717
  Transmission Date: 20100115
  Serious: Yes (Other)
  Sender: FDA-Public Use
  Company Number: None

PATIENT
  Age: 51 Year
  Sex: Male
  Weight: 97.5234 kg

DRUGS (1)
  1. GLIMEPIRIDE [Suspect]
     Indication: BLOOD GLUCOSE INCREASED
     Dosage: 1 TABLET PER SERVING OF FOOD TWICE A DAY
     Dates: start: 20090310, end: 20090603

REACTIONS (1)
  - HAEMATOCHEZIA [None]
